FAERS Safety Report 6882847-5 (Version None)
Quarter: 2010Q3

REPORT INFORMATION
  Report Type: 
  Country: None (occurrence: None)
  Receive Date: 20100727
  Receipt Date: 20100716
  Transmission Date: 20110219
  Serious: Yes (Other)
  Sender: FDA-Public Use
  Company Number: 7007232

PATIENT
  Age: 45 Year
  Sex: Male

DRUGS (2)
  1. REBIF [Suspect]
     Indication: MULTIPLE SCLEROSIS
     Dosage: 44 MCG, 3 IN 1 WK, SUBCUTANEOUS
     Route: 058
     Dates: start: 20080716, end: 20100601
  2. KEPPRA [Concomitant]

REACTIONS (6)
  - ABDOMINAL PAIN UPPER [None]
  - AURA [None]
  - GRAND MAL CONVULSION [None]
  - MUSCLE SPASMS [None]
  - NUCLEAR MAGNETIC RESONANCE IMAGING ABNORMAL [None]
  - WEIGHT DECREASED [None]
